FAERS Safety Report 9025066 (Version 2)
Quarter: 2013Q1

REPORT INFORMATION
  Report Type: Spontaneous
  Country: US (occurrence: US)
  Receive Date: 20130121
  Receipt Date: 20130204
  Transmission Date: 20140127
  Serious: Yes (Hospitalization, Other)
  Sender: FDA-Public Use
  Company Number: US-GENZYME-POMP-1002731

PATIENT
  Sex: Female

DRUGS (1)
  1. LUMIZYME [Suspect]
     Indication: GLYCOGEN STORAGE DISEASE TYPE II
     Dosage: 1350 MG, Q2W
     Route: 042
     Dates: start: 20100722, end: 20121127

REACTIONS (5)
  - Influenza [Unknown]
  - Coma [Unknown]
  - Loss of consciousness [Unknown]
  - Pneumonia [Unknown]
  - Therapeutic response decreased [Unknown]
